FAERS Safety Report 13354035 (Version 3)
Quarter: 2017Q2

REPORT INFORMATION
  Report Type: Spontaneous
  Country: US (occurrence: US)
  Receive Date: 20170321
  Receipt Date: 20170418
  Transmission Date: 20170830
  Serious: No
  Sender: FDA-Public Use
  Company Number: US-PFIZER INC-2017120883

PATIENT
  Age: 73 Year
  Sex: Male
  Weight: 83.91 kg

DRUGS (3)
  1. NICOTROL [Suspect]
     Active Substance: NICOTINE
     Indication: SMOKING CESSATION THERAPY
     Dosage: 10 MG, UNK
     Dates: start: 20170316
  2. NICOTROL [Suspect]
     Active Substance: NICOTINE
     Dosage: 10 MG, UNK
     Dates: start: 201703
  3. ZONNIC [Concomitant]
     Active Substance: NICOTINE
     Dosage: 4 MG, UNK
     Dates: start: 201703

REACTIONS (1)
  - Drug ineffective [Not Recovered/Not Resolved]

NARRATIVE: CASE EVENT DATE: 201703
